FAERS Safety Report 19269160 (Version 1)
Quarter: 2021Q2

REPORT INFORMATION
  Report Type: Spontaneous
  Country: CA (occurrence: CA)
  Receive Date: 20210517
  Receipt Date: 20210517
  Transmission Date: 20210717
  Serious: Yes (Death)
  Sender: FDA-Public Use
  Company Number: CA-PFIZER INC-2021007348

PATIENT
  Age: 74 Year
  Sex: Female

DRUGS (7)
  1. PANTOPRAZOLE [Concomitant]
     Active Substance: PANTOPRAZOLE
  2. ADALAT [Concomitant]
     Active Substance: NIFEDIPINE
  3. CALCIUM+MAGNESIUM+D3 [Concomitant]
  4. FASLODEX [Concomitant]
     Active Substance: FULVESTRANT
     Indication: BREAST CANCER FEMALE
     Dosage: UNK
  5. LEVOTHYROXINE. [Concomitant]
     Active Substance: LEVOTHYROXINE
  6. IBRANCE [Suspect]
     Active Substance: PALBOCICLIB
     Indication: BREAST CANCER FEMALE
     Dosage: 75 MG DAILY FOR 21 DAYS ON,  DAYS OFF
     Dates: start: 20201102
  7. TENORMIN [Concomitant]
     Active Substance: ATENOLOL

REACTIONS (2)
  - Death [Fatal]
  - Blood count abnormal [Unknown]

NARRATIVE: CASE EVENT DATE: 20210503
